FAERS Safety Report 23893947 (Version 1)
Quarter: 2024Q2

REPORT INFORMATION
  Report Type: Spontaneous
  Country: US (occurrence: US)
  Receive Date: 20240524
  Receipt Date: 20240524
  Transmission Date: 20240716
  Serious: Yes (Other)
  Sender: FDA-Public Use
  Company Number: US-AMICUS THERAPEUTICS, INC.-AMI_3109

PATIENT
  Age: 5 Decade
  Sex: Female

DRUGS (1)
  1. GALAFOLD [Suspect]
     Active Substance: MIGALASTAT HYDROCHLORIDE
     Indication: Fabry^s disease
     Dosage: 123 MILLIGRAM
     Route: 048
     Dates: start: 202206

REACTIONS (2)
  - Cardiac dysfunction [Recovering/Resolving]
  - Myocardial fibrosis [Recovering/Resolving]
